FAERS Safety Report 21490563 (Version 1)
Quarter: 2022Q4

REPORT INFORMATION
  Report Type: Spontaneous
  Country: US (occurrence: US)
  Receive Date: 20221021
  Receipt Date: 20221021
  Transmission Date: 20230112
  Serious: No
  Sender: FDA-Public Use
  Company Number: US-CIPLA LTD.-2022US03505

PATIENT
  Sex: Female

DRUGS (1)
  1. GABAPENTIN [Suspect]
     Active Substance: GABAPENTIN
     Indication: Anxiety
     Dosage: 1 DOSAGE FORM, BID (MORNING ONE PILL AND EVENING ONE PILL)
     Route: 065
     Dates: start: 20220524

REACTIONS (12)
  - Insomnia [Unknown]
  - Feeling abnormal [Unknown]
  - Energy increased [Unknown]
  - Tanning [Unknown]
  - Yellow skin [Unknown]
  - Memory impairment [Unknown]
  - Overdose [Recovered/Resolved]
  - Off label use [Unknown]
  - Product use in unapproved indication [Unknown]
  - Coordination abnormal [Unknown]
  - Tremor [Unknown]
  - Vision blurred [Unknown]

NARRATIVE: CASE EVENT DATE: 20220501
